FAERS Safety Report 20730436 (Version 1)
Quarter: 2022Q2

REPORT INFORMATION
  Report Type: Spontaneous
  Country: US (occurrence: None)
  Receive Date: 20220419
  Receipt Date: 20220419
  Transmission Date: 20220720
  Serious: Yes (Other)
  Sender: FDA-Public Use
  Company Number: None

PATIENT
  Age: 68 Year
  Sex: Female

DRUGS (1)
  1. ENBREL [Suspect]
     Active Substance: ETANERCEPT
     Indication: Rheumatoid arthritis
     Dosage: OTHER FREQUENCY : ONCE WEEKLY;?
     Route: 058

REACTIONS (4)
  - Swelling [None]
  - Discomfort [None]
  - Gait inability [None]
  - Therapy interrupted [None]

NARRATIVE: CASE EVENT DATE: 20210801
